FAERS Safety Report 13568447 (Version 2)
Quarter: 2017Q2

REPORT INFORMATION
  Report Type: Spontaneous
  Country: IN (occurrence: IN)
  Receive Date: 20170522
  Receipt Date: 20170524
  Transmission Date: 20170830
  Serious: Yes (Hospitalization, Other)
  Sender: FDA-Public Use
  Company Number: IN-PFIZER INC-2017217775

PATIENT
  Age: 51 Year
  Sex: Female

DRUGS (1)
  1. PALBACE [Suspect]
     Active Substance: PALBOCICLIB
     Indication: BREAST CANCER METASTATIC
     Dosage: 125 MG, 1X/DAY
     Route: 048
     Dates: start: 20170502

REACTIONS (9)
  - Mouth ulceration [Unknown]
  - Gait disturbance [Unknown]
  - Loss of consciousness [Unknown]
  - Oropharyngeal pain [Unknown]
  - Platelet count decreased [Unknown]
  - Abdominal pain [Unknown]
  - Tongue ulceration [Unknown]
  - Haemoglobin decreased [Unknown]
  - Lip ulceration [Unknown]
